FAERS Safety Report 15708794 (Version 3)
Quarter: 2018Q4

REPORT INFORMATION
  Report Type: Report from Study
  Country: US (occurrence: US)
  Receive Date: 20181211
  Receipt Date: 20181221
  Transmission Date: 20190205
  Serious: Yes (Hospitalization, Other)
  Sender: FDA-Public Use
  Company Number: US-GILEAD-2018-0378926

PATIENT
  Age: 74 Year
  Sex: Female
  Weight: 143.34 kg

DRUGS (24)
  1. CARVEDILOL. [Concomitant]
     Active Substance: CARVEDILOL
  2. MUCINEX [Concomitant]
     Active Substance: GUAIFENESIN
  3. LETAIRIS [Suspect]
     Active Substance: AMBRISENTAN
     Dosage: 5 MG
     Dates: start: 20181108
  4. AMBRISENTAN [Suspect]
     Active Substance: AMBRISENTAN
     Indication: PULMONARY HYPERTENSION
     Dosage: 5 MG, QD
     Route: 065
     Dates: start: 20181108
  5. ASPIRIN 81 [Concomitant]
     Active Substance: ASPIRIN
  6. LOSARTAN POTASSIUM. [Concomitant]
     Active Substance: LOSARTAN POTASSIUM
  7. ALLOPURINOL. [Concomitant]
     Active Substance: ALLOPURINOL
  8. CELEBREX [Concomitant]
     Active Substance: CELECOXIB
  9. PROAIR HFA [Concomitant]
     Active Substance: ALBUTEROL SULFATE
  10. METFORMIN [Concomitant]
     Active Substance: METFORMIN HYDROCHLORIDE
  11. OXYGEN. [Concomitant]
     Active Substance: OXYGEN
  12. GABAPENTIN. [Concomitant]
     Active Substance: GABAPENTIN
  13. TADALAFIL. [Concomitant]
     Active Substance: TADALAFIL
  14. ADCIRCA [Concomitant]
     Active Substance: TADALAFIL
  15. ALBUTEROL SULFATE. [Concomitant]
     Active Substance: ALBUTEROL SULFATE
  16. AMITRIPTYLINE [Concomitant]
     Active Substance: AMITRIPTYLINE
  17. LATANOPROST. [Concomitant]
     Active Substance: LATANOPROST
  18. ROPINIROLE. [Concomitant]
     Active Substance: ROPINIROLE
  19. PRAVASTATIN SODIUM. [Concomitant]
     Active Substance: PRAVASTATIN SODIUM
  20. ADVAIR HFA [Concomitant]
     Active Substance: FLUTICASONE PROPIONATE\SALMETEROL XINAFOATE
  21. FUROSEMIDE. [Concomitant]
     Active Substance: FUROSEMIDE
  22. METOLAZONE. [Concomitant]
     Active Substance: METOLAZONE
  23. VITAMIN D3 [Concomitant]
     Active Substance: CHOLECALCIFEROL
  24. SINGULAIR [Concomitant]
     Active Substance: MONTELUKAST SODIUM

REACTIONS (3)
  - Syncope [Unknown]
  - Renal failure [Unknown]
  - Hypotension [Unknown]
